FAERS Safety Report 13673598 (Version 2)
Quarter: 2017Q2

REPORT INFORMATION
  Report Type: Spontaneous
  Country: BE (occurrence: BE)
  Receive Date: 20170621
  Receipt Date: 20170627
  Transmission Date: 20170830
  Serious: Yes (Other)
  Sender: FDA-Public Use
  Company Number: BE-SUN PHARMACEUTICAL INDUSTRIES LTD-2017R1-143511

PATIENT
  Age: 66 Year
  Sex: Male

DRUGS (1)
  1. CASODEX [Suspect]
     Active Substance: BICALUTAMIDE
     Indication: ANTIANDROGEN THERAPY
     Dosage: UNK
     Route: 065

REACTIONS (2)
  - Lymphadenopathy [Unknown]
  - Breast pain [Unknown]
